FAERS Safety Report 8912590 (Version 1)
Quarter: 2012Q4

REPORT INFORMATION
  Report Type: 
  Country: US (occurrence: US)
  Receive Date: 20121116
  Receipt Date: 20121116
  Transmission Date: 20130627
  Serious: Yes (Other)
  Sender: FDA-Public Use
  Company Number: US-BRISTOL-MYERS SQUIBB COMPANY-17107061

PATIENT
  Age: 14 Year
  Sex: Male

DRUGS (3)
  1. DIDANOSINE [Suspect]
     Indication: HIV INFECTION
  2. ZIDOVUDINE [Suspect]
     Indication: HIV INFECTION
  3. LOPINAVIR + RITONAVIR [Suspect]
     Indication: HIV INFECTION

REACTIONS (3)
  - Immune reconstitution inflammatory syndrome [Unknown]
  - Post streptococcal glomerulonephritis [Unknown]
  - Herpes zoster [Unknown]
